FAERS Safety Report 4676509-2 (Version None)
Quarter: 2005Q2

REPORT INFORMATION
  Report Type: 
  Country: None (occurrence: None)
  Receive Date: 20050527
  Receipt Date: 20050512
  Transmission Date: 20051028
  Serious: Yes (Hospitalization)
  Sender: FDA-Public Use
  Company Number: FR-JNJFOC-20050505373

PATIENT
  Age: 76 Year
  Sex: Female

DRUGS (12)
  1. TOPALGIC [Suspect]
     Indication: DRUG USE FOR UNKNOWN INDICATION
     Route: 049
  2. DI ANTALVIC [Suspect]
     Route: 065
  3. DI ANTALVIC [Suspect]
     Indication: DRUG USE FOR UNKNOWN INDICATION
     Route: 065
  4. LASILIX [Suspect]
     Indication: DRUG USE FOR UNKNOWN INDICATION
     Route: 049
  5. XANAX [Suspect]
     Indication: DRUG USE FOR UNKNOWN INDICATION
     Route: 049
  6. MOPRAL [Suspect]
     Indication: DRUG USE FOR UNKNOWN INDICATION
     Route: 049
  7. CORTICOTHERAPY [Suspect]
     Indication: DRUG USE FOR UNKNOWN INDICATION
     Route: 065
  8. DOLIPRANE [Concomitant]
     Route: 065
  9. SOTALOL HCL [Concomitant]
     Route: 049
  10. LEVOTHYROX [Concomitant]
     Route: 049
  11. CORDARONE [Concomitant]
     Route: 065
  12. TAHOR [Concomitant]
     Route: 049

REACTIONS (1)
  - ERYTHEMA [None]
